FAERS Safety Report 5128984-7 (Version None)
Quarter: 2006Q4

REPORT INFORMATION
  Report Type: 
  Country: None (occurrence: None)
  Receive Date: 20061016
  Receipt Date: 20061016
  Transmission Date: 20070319
  Serious: No
  Sender: FDA-Public Use
  Company Number: None

PATIENT
  Age: 17 Year
  Sex: Male
  Weight: 81.6475 kg

DRUGS (1)
  1. PREVACID [Suspect]
     Indication: GASTRITIS
     Dosage: 30 MG ONCE A DAY PO
     Route: 048
     Dates: start: 20060824, end: 20060908

REACTIONS (2)
  - PRURITUS [None]
  - RASH GENERALISED [None]
